FAERS Safety Report 5709358-4 (Version None)
Quarter: 2008Q2

REPORT INFORMATION
  Report Type: 
  Country: None (occurrence: None)
  Receive Date: 20080417
  Receipt Date: 20080417
  Transmission Date: 20081010
  Serious: Yes (Other)
  Sender: FDA-Public Use
  Company Number: None

PATIENT
  Age: 54 Year
  Sex: Male
  Weight: 95.709 kg

DRUGS (6)
  1. FORTAMET ER 1000MG  MFG: WATSON (SCIELE) RPH. B. CESANEK [Suspect]
     Indication: HYPERLIPIDAEMIA
     Dosage: 1 PER DAY
     Dates: start: 20080328
  2. FORTAMET ER 1000MG  MFG: WATSON (SCIELE) RPH. B. CESANEK [Suspect]
     Indication: HYPERLIPIDAEMIA
     Dosage: 1 PER DAY
     Dates: start: 20080330
  3. FORTAMET ER 1000MG  MFG: WATSON (SCIELE) RPH. B. CESANEK [Suspect]
     Indication: HYPERLIPIDAEMIA
     Dosage: 1 PER DAY
     Dates: start: 20080331
  4. LIPITOR [Suspect]
     Indication: DIABETES MELLITUS
     Dosage: 1 PER DAY
     Dates: start: 20080328
  5. LIPITOR [Suspect]
     Indication: DIABETES MELLITUS
     Dosage: 1 PER DAY
     Dates: start: 20080330
  6. LIPITOR [Suspect]
     Indication: DIABETES MELLITUS
     Dosage: 1 PER DAY
     Dates: start: 20080331

REACTIONS (6)
  - ABDOMINAL DISCOMFORT [None]
  - ANXIETY [None]
  - EMOTIONAL DISORDER [None]
  - NERVOUS SYSTEM DISORDER [None]
  - PHARMACEUTICAL PRODUCT COMPLAINT [None]
  - URINE COLOUR ABNORMAL [None]
